FAERS Safety Report 18902475 (Version 2)
Quarter: 2021Q3

REPORT INFORMATION
  Report Type: Spontaneous
  Country: US (occurrence: BR)
  Receive Date: 20210216
  Receipt Date: 20210820
  Transmission Date: 20211014
  Serious: Yes (Other)
  Sender: FDA-Public Use
  Company Number: BR-BIOMARINAP-BR-2021-135024

PATIENT
  Age: 4 Year
  Sex: Female
  Weight: 13.7 kg

DRUGS (2)
  1. ALDURAZYME [Suspect]
     Active Substance: LARONIDASE
     Indication: MUCOPOLYSACCHARIDOSIS I
     Dosage: UNK
     Route: 042
     Dates: start: 20191001
  2. ALDURAZYME [Suspect]
     Active Substance: LARONIDASE
     Dosage: UNK
     Route: 042

REACTIONS (5)
  - Gait inability [Recovering/Resolving]
  - Product use issue [Unknown]
  - Mobility decreased [Unknown]
  - Seizure [Unknown]
  - Muscular weakness [Unknown]

NARRATIVE: CASE EVENT DATE: 202101
